FAERS Safety Report 24448488 (Version 3)
Quarter: 2025Q2

REPORT INFORMATION
  Report Type: Report from Study
  Country: US (occurrence: US)
  Receive Date: 20241017
  Receipt Date: 20250411
  Transmission Date: 20250716
  Serious: Yes (Hospitalization, Other)
  Sender: TAKEDA
  Company Number: US-TAKEDA-2021TUS062063

PATIENT
  Sex: Female
  Weight: 50 kg

DRUGS (28)
  1. HUMAN IMMUNOGLOBULIN G [Suspect]
     Active Substance: HUMAN IMMUNOGLOBULIN G
     Indication: Bronchopulmonary dysplasia
     Dosage: 20 GRAM, Q4WEEKS
     Dates: start: 20130929
  2. HUMAN IMMUNOGLOBULIN G [Suspect]
     Active Substance: HUMAN IMMUNOGLOBULIN G
     Indication: Immunodeficiency common variable
  3. DIPHENHYDRAMINE [Concomitant]
     Active Substance: DIPHENHYDRAMINE
  4. DIPHENHYDRAMINE HYDROCHLORIDE [Concomitant]
     Active Substance: DIPHENHYDRAMINE HYDROCHLORIDE
  5. BUDESONIDE [Concomitant]
     Active Substance: BUDESONIDE
  6. ALBUTEROL\IPRATROPIUM [Concomitant]
     Active Substance: ALBUTEROL\IPRATROPIUM
  7. EPINEPHRINE [Concomitant]
     Active Substance: EPINEPHRINE
  8. SODIUM CHLORIDE [Concomitant]
     Active Substance: SODIUM CHLORIDE
  9. YAZ [Concomitant]
     Active Substance: DROSPIRENONE\ETHINYL ESTRADIOL
  10. PROTONIX [Concomitant]
     Active Substance: PANTOPRAZOLE SODIUM
  11. LANTUS [Concomitant]
     Active Substance: INSULIN GLARGINE
  12. ACIDOPHILUS [Concomitant]
     Active Substance: LACTOBACILLUS ACIDOPHILUS
  13. GEODON [Concomitant]
     Active Substance: ZIPRASIDONE HYDROCHLORIDE\ZIPRASIDONE MESYLATE
  14. SINGULAIR [Concomitant]
     Active Substance: MONTELUKAST SODIUM
  15. OXYGEN [Concomitant]
     Active Substance: OXYGEN
  16. BENZTROPINE MESYLATE [Concomitant]
     Active Substance: BENZTROPINE MESYLATE
  17. LEVALBUTEROL TARTRATE [Concomitant]
     Active Substance: LEVALBUTEROL TARTRATE
  18. ALDACTONE [Concomitant]
     Active Substance: SPIRONOLACTONE
  19. BROVANA [Concomitant]
     Active Substance: ARFORMOTEROL TARTRATE
  20. LASIX [Concomitant]
     Active Substance: FUROSEMIDE
  21. LEVALBUTEROL HYDROCHLORIDE [Concomitant]
     Active Substance: LEVALBUTEROL HYDROCHLORIDE
  22. LEVOCARNITINE [Concomitant]
     Active Substance: LEVOCARNITINE
  23. VITAMIN C [Concomitant]
     Active Substance: ASCORBIC ACID
  24. HUMALOG JUNIOR KWIKPEN [Concomitant]
     Active Substance: INSULIN LISPRO
  25. SILDENAFIL CITRATE [Concomitant]
     Active Substance: SILDENAFIL CITRATE
  26. BUSPIRONE HCL [Concomitant]
     Active Substance: BUSPIRONE HYDROCHLORIDE
  27. TRAZODONE HCL [Concomitant]
     Active Substance: TRAZODONE HYDROCHLORIDE
  28. SPIRONOLACTONE AND HYDROCHLOROTHIAZIDE [Concomitant]
     Active Substance: HYDROCHLOROTHIAZIDE\SPIRONOLACTONE

REACTIONS (4)
  - Carbon dioxide increased [Unknown]
  - Pneumonia aspiration [Unknown]
  - Rubber sensitivity [Unknown]
  - Urticaria [Unknown]
